FAERS Safety Report 11640396 (Version 1)
Quarter: 2015Q4

REPORT INFORMATION
  Report Type: Spontaneous
  Country: US (occurrence: US)
  Receive Date: 20151019
  Receipt Date: 20151019
  Transmission Date: 20160304
  Serious: Yes (Other)
  Sender: FDA-Public Use
  Company Number: US-JNJFOC-20151008995

PATIENT
  Sex: Male
  Weight: 102.06 kg

DRUGS (5)
  1. METFORMIN [Concomitant]
     Active Substance: METFORMIN HYDROCHLORIDE
     Indication: DIABETES MELLITUS
     Route: 065
  2. HYDROCODONE [Concomitant]
     Active Substance: HYDROCODONE
     Indication: BACK DISORDER
     Route: 065
  3. HALDOL [Suspect]
     Active Substance: HALOPERIDOL
     Indication: PRODUCT USED FOR UNKNOWN INDICATION
     Route: 030
  4. HYDROCODONE [Concomitant]
     Active Substance: HYDROCODONE
     Indication: NERVE COMPRESSION
     Route: 065
  5. HYDROCODONE [Concomitant]
     Active Substance: HYDROCODONE
     Indication: INTERVERTEBRAL DISC PROTRUSION
     Route: 065

REACTIONS (6)
  - Drug hypersensitivity [Unknown]
  - Heart rate increased [Not Recovered/Not Resolved]
  - Unevaluable event [Unknown]
  - Restlessness [Unknown]
  - Nerve injury [Not Recovered/Not Resolved]
  - Insomnia [Unknown]
